FAERS Safety Report 5506807-1 (Version None)
Quarter: 2007Q4

REPORT INFORMATION
  Report Type: 
  Country: None (occurrence: None)
  Receive Date: 20071105
  Receipt Date: 20071024
  Transmission Date: 20080405
  Serious: Yes (Other)
  Sender: FDA-Public Use
  Company Number: US-PFIZER INC-2007090166

PATIENT
  Age: 42 Year
  Sex: Male

DRUGS (4)
  1. GEODON [Suspect]
     Indication: SCHIZOAFFECTIVE DISORDER
  2. GEODON [Suspect]
     Indication: SCHIZOPHRENIA
  3. HALDOL [Concomitant]
  4. ZYPREXA [Concomitant]

REACTIONS (5)
  - INDIFFERENCE [None]
  - PSYCHOTIC BEHAVIOUR [None]
  - SOMNOLENCE [None]
  - SPEECH DISORDER [None]
  - TREMOR [None]
